FAERS Safety Report 4783599-5 (Version None)
Quarter: 2005Q3

REPORT INFORMATION
  Report Type: 
  Country: None (occurrence: None)
  Receive Date: 20050929
  Receipt Date: 20050915
  Transmission Date: 20060218
  Serious: Yes (Death, Hospitalization, Other)
  Sender: FDA-Public Use
  Company Number: US-JNJFOC-20050703829

PATIENT
  Sex: Female

DRUGS (19)
  1. DURAGESIC-100 [Suspect]
     Route: 062
  2. DURAGESIC-100 [Suspect]
     Route: 062
  3. DURAGESIC-100 [Suspect]
     Route: 062
  4. DURAGESIC-100 [Suspect]
     Route: 062
  5. DURAGESIC-100 [Suspect]
     Route: 062
  6. DURAGESIC-100 [Suspect]
     Route: 062
  7. DURAGESIC-100 [Suspect]
     Route: 062
  8. SIMETHICONE [Concomitant]
     Indication: DRUG USE FOR UNKNOWN INDICATION
  9. QUETIAPINE FUMARATE [Concomitant]
     Indication: DRUG USE FOR UNKNOWN INDICATION
  10. ESCITALOPRAM OXALATE [Concomitant]
     Indication: DRUG USE FOR UNKNOWN INDICATION
  11. OXYCODONE HCL [Concomitant]
     Indication: DRUG USE FOR UNKNOWN INDICATION
  12. ALPRAZOLAM [Concomitant]
     Indication: DRUG USE FOR UNKNOWN INDICATION
  13. ONDANSETRON [Concomitant]
     Indication: DRUG USE FOR UNKNOWN INDICATION
  14. MEPERIDINE HCL [Concomitant]
     Indication: DRUG USE FOR UNKNOWN INDICATION
  15. DEXTROAMPHETAMINE [Concomitant]
     Indication: DRUG USE FOR UNKNOWN INDICATION
  16. GABAPENTIN [Concomitant]
     Indication: DRUG USE FOR UNKNOWN INDICATION
  17. MODAFINIL [Concomitant]
     Indication: DRUG USE FOR UNKNOWN INDICATION
  18. TEGASEROD [Concomitant]
     Indication: DRUG USE FOR UNKNOWN INDICATION
  19. HYDROCORTISONE [Concomitant]
     Indication: DRUG USE FOR UNKNOWN INDICATION
     Route: 061

REACTIONS (38)
  - ABDOMINAL PAIN [None]
  - APPLICATION SITE DERMATITIS [None]
  - APPLICATION SITE PUSTULES [None]
  - ASTHENIA [None]
  - BIPOLAR DISORDER [None]
  - CEREBROVASCULAR ACCIDENT [None]
  - COGNITIVE DISORDER [None]
  - CONVULSION [None]
  - DEHYDRATION [None]
  - DEPRESSION [None]
  - DEVICE FAILURE [None]
  - DIFFICULTY IN WALKING [None]
  - DRUG ABUSER [None]
  - DRUG DEPENDENCE [None]
  - DRUG TOXICITY [None]
  - DYSTHYMIC DISORDER [None]
  - FATIGUE [None]
  - HEADACHE [None]
  - HYPOAESTHESIA [None]
  - INTRACRANIAL ANEURYSM [None]
  - LOSS OF CONSCIOUSNESS [None]
  - MIGRAINE [None]
  - MIXED CONNECTIVE TISSUE DISEASE [None]
  - OCCUPATIONAL EXPOSURE TO TOXIC AGENT [None]
  - PAIN [None]
  - PERICARDIAL FIBROSIS [None]
  - PHARMACEUTICAL PRODUCT COMPLAINT [None]
  - POST-TRAUMATIC STRESS DISORDER [None]
  - PULMONARY OEDEMA [None]
  - REFUSAL OF TREATMENT BY PATIENT [None]
  - SINUSITIS [None]
  - SLEEP DISORDER [None]
  - SOMATISATION DISORDER [None]
  - SOMNOLENCE [None]
  - SUICIDAL IDEATION [None]
  - SYNCOPE [None]
  - SYNCOPE VASOVAGAL [None]
  - VOMITING [None]
